FAERS Safety Report 5310030-3 (Version None)
Quarter: 2007Q2

REPORT INFORMATION
  Report Type: 
  Country: None (occurrence: None)
  Receive Date: 20070427
  Receipt Date: 20070425
  Transmission Date: 20071010
  Serious: Yes (Other)
  Sender: FDA-Public Use
  Company Number: US-GLAXOSMITHKLINE-A0648733A

PATIENT
  Age: 22 Year
  Sex: Male

DRUGS (3)
  1. VALTREX [Suspect]
     Dosage: 1G PER DAY
     Route: 048
     Dates: start: 20070424
  2. ADDERALL 10 [Concomitant]
  3. STRATTERA [Concomitant]

REACTIONS (11)
  - ERYTHEMA [None]
  - FEELING HOT [None]
  - HALLUCINATION [None]
  - HYPERHIDROSIS [None]
  - ILL-DEFINED DISORDER [None]
  - INITIAL INSOMNIA [None]
  - OCULAR HYPERAEMIA [None]
  - PARAESTHESIA [None]
  - POLLAKIURIA [None]
  - PRURITUS [None]
  - RASH [None]
